FAERS Safety Report 24552017 (Version 2)
Quarter: 2024Q4

REPORT INFORMATION
  Report Type: Report from Study
  Country: US (occurrence: US)
  Receive Date: 20241026
  Receipt Date: 20241212
  Transmission Date: 20250115
  Serious: Yes (Hospitalization, Other)
  Sender: TAKEDA
  Company Number: US-TAKEDA-2024TUS089799

PATIENT
  Age: 51 Year
  Sex: Female

DRUGS (4)
  1. TEDUGLUTIDE [Suspect]
     Active Substance: TEDUGLUTIDE
     Indication: Short-bowel syndrome
     Dosage: 0.4 MILLILITER, QD
     Dates: start: 202407
  2. TEDUGLUTIDE [Suspect]
     Active Substance: TEDUGLUTIDE
  3. TEDUGLUTIDE [Suspect]
     Active Substance: TEDUGLUTIDE
  4. TEDUGLUTIDE [Suspect]
     Active Substance: TEDUGLUTIDE

REACTIONS (21)
  - Pulmonary thrombosis [Unknown]
  - Ovarian cyst ruptured [Unknown]
  - Vaginal haemorrhage [Unknown]
  - Pneumonia [Unknown]
  - Calculus urinary [Unknown]
  - Ovarian cancer [Unknown]
  - Abdominal pain lower [Unknown]
  - Dyspnoea [Unknown]
  - Complication associated with device [Unknown]
  - Weight decreased [Unknown]
  - Bacterial infection [Unknown]
  - Viral infection [Unknown]
  - Oropharyngeal pain [Unknown]
  - Lymphadenopathy [Unknown]
  - Rash papular [Unknown]
  - Weight increased [Unknown]
  - Peripheral swelling [Recovered/Resolved]
  - Device malfunction [Unknown]
  - Pruritus [Unknown]
  - Flatulence [Unknown]
  - Hypervolaemia [Unknown]

NARRATIVE: CASE EVENT DATE: 20241204
